FAERS Safety Report 18282659 (Version 1)
Quarter: 2020Q3

REPORT INFORMATION
  Report Type: Spontaneous
  Country: US (occurrence: US)
  Receive Date: 20200918
  Receipt Date: 20200918
  Transmission Date: 20201103
  Serious: Yes (Other)
  Sender: FDA-Public Use
  Company Number: None

PATIENT
  Age: 59 Year
  Sex: Female
  Weight: 85.5 kg

DRUGS (4)
  1. DOXYCYCLINE HYCLATE. [Suspect]
     Active Substance: DOXYCYCLINE HYCLATE
     Indication: POSTOPERATIVE CARE
     Dosage: ?          QUANTITY:1 TABLET(S);?
     Route: 048
     Dates: start: 20200911, end: 20200917
  2. PENICILLIN [Suspect]
     Active Substance: PENICILLIN
  3. CLINDAMYCIN. [Suspect]
     Active Substance: CLINDAMYCIN
  4. VITAMIN D [Concomitant]
     Active Substance: VITAMIN D NOS

REACTIONS (7)
  - Drug hypersensitivity [None]
  - Chills [None]
  - Bone pain [None]
  - Pyrexia [None]
  - SARS-CoV-2 test negative [None]
  - Headache [None]
  - Pain [None]

NARRATIVE: CASE EVENT DATE: 20200916
